FAERS Safety Report 8248015-X (Version None)
Quarter: 2012Q1

REPORT INFORMATION
  Report Type: 
  Country: None (occurrence: None)
  Receive Date: 20120330
  Receipt Date: 20120319
  Transmission Date: 20120608
  Serious: Yes (Death)
  Sender: FDA-Public Use
  Company Number: TW-BAXTER-2012BH006828

PATIENT
  Sex: Female

DRUGS (4)
  1. DIANEAL [Suspect]
     Route: 033
     Dates: start: 20110901
  2. DIANEAL_2.5% PD2_SOLUTION FOR PERITONEAL DIALYSIS_BAG, PVC [Suspect]
  3. DIANEAL [Suspect]
  4. DIANEAL_2.5% PD2_SOLUTION FOR PERITONEAL DIALYSIS_BAG, PVC [Suspect]
     Route: 033
     Dates: start: 20110901

REACTIONS (1)
  - RESPIRATORY FAILURE [None]
